FAERS Safety Report 12637155 (Version 1)
Quarter: 2016Q3

REPORT INFORMATION
  Report Type: Spontaneous
  Country: US (occurrence: US)
  Receive Date: 20160809
  Receipt Date: 20160809
  Transmission Date: 20161109
  Serious: No
  Sender: FDA-Public Use
  Company Number: US-ASTRAZENECA-2016SE80357

PATIENT
  Sex: Male

DRUGS (3)
  1. NEW MEDICINE [Suspect]
     Active Substance: UNSPECIFIED INGREDIENT
     Route: 065
  2. BRILINTA [Suspect]
     Active Substance: TICAGRELOR
     Indication: ACUTE CORONARY SYNDROME
     Route: 048
  3. BRILINTA [Suspect]
     Active Substance: TICAGRELOR
     Indication: ACUTE CORONARY SYNDROME
     Route: 048

REACTIONS (3)
  - Intentional product misuse [Unknown]
  - Hypersensitivity [Unknown]
  - Malaise [Unknown]
